FAERS Safety Report 9119342 (Version 1)
Quarter: 2013Q1

REPORT INFORMATION
  Report Type: Spontaneous
  Country: US (occurrence: US)
  Receive Date: 20130207
  Receipt Date: 20130207
  Transmission Date: 20140127
  Serious: Yes (Death, Other)
  Sender: FDA-Public Use
  Company Number: CHPA2013US002664

PATIENT
  Age: 61 Year
  Sex: Male

DRUGS (1)
  1. THERAFLU NIGHTTIME SEVERE COLD + COUGH [Suspect]
     Indication: INSOMNIA
     Dosage: 1 DF, UNK
     Route: 048

REACTIONS (2)
  - Bladder cancer [Fatal]
  - Off label use [Unknown]
